FAERS Safety Report 9753720 (Version 1)
Quarter: 2013Q4

REPORT INFORMATION
  Report Type: Spontaneous
  Country: US (occurrence: US)
  Receive Date: 20131213
  Receipt Date: 20131213
  Transmission Date: 20140711
  Serious: No
  Sender: FDA-Public Use
  Company Number: US-GILEAD-2010-0026588

PATIENT
  Sex: Male
  Weight: 78.92 kg

DRUGS (7)
  1. LETAIRIS [Suspect]
     Indication: PULMONARY ARTERIAL HYPERTENSION
     Route: 048
     Dates: start: 20091230
  2. FOLIC ACID [Concomitant]
  3. GABAPENTIN [Concomitant]
  4. CASODEX [Concomitant]
  5. PLAVIX [Concomitant]
  6. PHOSLO [Concomitant]
  7. RENA-VITE [Concomitant]

REACTIONS (1)
  - Constipation [Unknown]
